FAERS Safety Report 9397476 (Version 2)
Quarter: 2013Q3

REPORT INFORMATION
  Report Type: Spontaneous
  Country: SE (occurrence: SE)
  Receive Date: 20130712
  Receipt Date: 20130808
  Transmission Date: 20140515
  Serious: Yes (Hospitalization)
  Sender: FDA-Public Use
  Company Number: SE-NOVOPROD-382418

PATIENT
  Age: 55 Year
  Sex: Male

DRUGS (9)
  1. VICTOZA [Suspect]
     Indication: TYPE 2 DIABETES MELLITUS
     Dosage: 0.6 MG, QD
     Route: 058
     Dates: start: 20130420
  2. VICTOZA [Suspect]
     Dosage: 1.2 MG, QD
     Route: 058
     Dates: end: 20130613
  3. CRESTOR [Concomitant]
     Dosage: 5 MG
     Route: 065
  4. METOPROLOL [Concomitant]
     Dosage: 25 MG
     Route: 065
  5. METFORMIN [Concomitant]
     Dosage: UNKNOWN
     Route: 065
  6. ALLOPURINOL [Concomitant]
     Dosage: UNKNOWN
     Route: 065
  7. LANTUS [Concomitant]
     Dosage: UNKNOWN
     Route: 065
  8. ENALAPRIL [Concomitant]
  9. AMLODIPIN                          /00972401/ [Concomitant]

REACTIONS (3)
  - Flushing [Recovered/Resolved]
  - Tachycardia [Recovered/Resolved]
  - Diarrhoea [Recovered/Resolved]
